FAERS Safety Report 24181619 (Version 5)
Quarter: 2025Q1

REPORT INFORMATION
  Report Type: Spontaneous
  Country: JP (occurrence: JP)
  Receive Date: 20240807
  Receipt Date: 20250129
  Transmission Date: 20250409
  Serious: Yes (Life-Threatening, Hospitalization, Other)
  Sender: GLAXOSMITHKLINE
  Company Number: JP-GLAXOSMITHKLINE-JP2024JPN091967

PATIENT

DRUGS (1)
  1. VALTREX [Suspect]
     Active Substance: VALACYCLOVIR HYDROCHLORIDE
     Indication: Herpes zoster
     Route: 048
     Dates: start: 20230417

REACTIONS (12)
  - Dysarthria [Recovering/Resolving]
  - Decreased appetite [Recovering/Resolving]
  - Toxic encephalopathy [Recovering/Resolving]
  - Altered state of consciousness [Recovered/Resolved]
  - Renal impairment [Recovering/Resolving]
  - Condition aggravated [Recovering/Resolving]
  - Acute kidney injury [Recovered/Resolved]
  - Nephropathy [Recovering/Resolving]
  - Cognitive disorder [Recovered/Resolved]
  - Muscular weakness [Unknown]
  - Hypertension [Unknown]
  - Accidental overdose [Unknown]

NARRATIVE: CASE EVENT DATE: 20230420
